FAERS Safety Report 5970027-7 (Version None)
Quarter: 2008Q4

REPORT INFORMATION
  Report Type: 
  Country: None (occurrence: None)
  Receive Date: 20081126
  Receipt Date: 20081119
  Transmission Date: 20090506
  Serious: Yes (Hospitalization)
  Sender: FDA-Public Use
  Company Number: CG-MERCK-0811USA03646

PATIENT
  Age: 38 Year
  Sex: Male
  Weight: 57 kg

DRUGS (1)
  1. STROMECTOL [Suspect]
     Indication: ONCHOCERCIASIS
     Route: 048
     Dates: start: 20080816, end: 20080816

REACTIONS (10)
  - ASTHENIA [None]
  - BODY TEMPERATURE DECREASED [None]
  - COMA [None]
  - CONJUNCTIVAL HAEMORRHAGE [None]
  - EYELID OEDEMA [None]
  - HYPERREFLEXIA [None]
  - HYPOTENSION [None]
  - MUSCLE RIGIDITY [None]
  - PERIPHERAL COLDNESS [None]
  - PULSE ABNORMAL [None]
